FAERS Safety Report 13651558 (Version 5)
Quarter: 2017Q3

REPORT INFORMATION
  Report Type: Spontaneous
  Country: JP (occurrence: JP)
  Receive Date: 20170614
  Receipt Date: 20170714
  Transmission Date: 20171127
  Serious: Yes (Hospitalization, Other)
  Sender: FDA-Public Use
  Company Number: JP-JNJFOC-20170523904

PATIENT
  Age: 44 Year
  Sex: Male
  Weight: 58 kg

DRUGS (8)
  1. YONDELIS [Suspect]
     Active Substance: TRABECTEDIN
     Indication: MYXOID LIPOSARCOMA
     Dosage: CYCLE 1, A 24-HOUR INFUSION
     Route: 042
     Dates: start: 20170328
  2. YONDELIS [Suspect]
     Active Substance: TRABECTEDIN
     Indication: MYXOID LIPOSARCOMA
     Dosage: CYCLE 3
     Route: 042
     Dates: start: 20170509
  3. GLYCYRON [Suspect]
     Active Substance: AMMONIUM GLYCYRRHIZATE\GLYCINE\METHIONINE
     Indication: PROPHYLAXIS
     Route: 048
     Dates: start: 20170420, end: 20170427
  4. GLYCYRON [Suspect]
     Active Substance: AMMONIUM GLYCYRRHIZATE\GLYCINE\METHIONINE
     Indication: PROPHYLAXIS
     Route: 048
     Dates: start: 20170510, end: 20170518
  5. YONDELIS [Suspect]
     Active Substance: TRABECTEDIN
     Indication: MYXOID LIPOSARCOMA
     Dosage: CYCLE 2
     Route: 042
     Dates: start: 20170418
  6. SENNOSIDE [Concomitant]
     Active Substance: SENNOSIDES
     Indication: CONSTIPATION
     Route: 048
     Dates: start: 20170511, end: 20170518
  7. GLYCYRON [Suspect]
     Active Substance: AMMONIUM GLYCYRRHIZATE\GLYCINE\METHIONINE
     Indication: PROPHYLAXIS
     Route: 048
     Dates: start: 20170328, end: 20170413
  8. URSO [Concomitant]
     Active Substance: URSODIOL
     Indication: PROPHYLAXIS
     Route: 048
     Dates: start: 20170510, end: 20170518

REACTIONS (6)
  - Bone marrow failure [Recovered/Resolved]
  - Aspartate aminotransferase increased [Recovered/Resolved]
  - Alanine aminotransferase increased [Recovered/Resolved]
  - Rhabdomyolysis [Recovered/Resolved]
  - Hypokalaemia [Recovered/Resolved]
  - Pleural effusion [Recovered/Resolved]

NARRATIVE: CASE EVENT DATE: 20170331
